FAERS Safety Report 22351080 (Version 2)
Quarter: 2023Q2

REPORT INFORMATION
  Report Type: Report from Study
  Country: GR (occurrence: GR)
  Receive Date: 20230522
  Receipt Date: 20230626
  Transmission Date: 20230721
  Serious: Yes (Hospitalization)
  Sender: FDA-Public Use
  Company Number: GR-PFIZER INC-PV202300051652

PATIENT
  Age: 77 Year
  Sex: Male
  Weight: 74 kg

DRUGS (10)
  1. ENCORAFENIB [Suspect]
     Active Substance: ENCORAFENIB
     Indication: Malignant melanoma
     Dosage: ENCORAFENIB;PLACEBO, ONCE DAILY
     Route: 048
     Dates: start: 20221114, end: 20230315
  2. BINIMETINIB [Suspect]
     Active Substance: BINIMETINIB
     Indication: Malignant melanoma
     Dosage: BINIMETINIB;PLACEBO, TWICE DAILY
     Route: 048
     Dates: start: 20221114, end: 20230315
  3. PEMBROLIZUMAB [Suspect]
     Active Substance: PEMBROLIZUMAB
     Indication: Malignant melanoma
     Dosage: 200 MG, DAY 1 EVERY 3 WEEKS (21 DAYS)
     Route: 042
     Dates: start: 20221114, end: 20230302
  4. LIPITOR [Concomitant]
     Active Substance: ATORVASTATIN CALCIUM
     Indication: Hyperlipidaemia
     Dosage: UNK
     Dates: start: 1995
  5. PLAVIX [Concomitant]
     Active Substance: CLOPIDOGREL BISULFATE
     Indication: Coronary artery disease
     Dosage: UNK
     Dates: start: 1995
  6. BISOPROLOL FUMARATE [Concomitant]
     Active Substance: BISOPROLOL FUMARATE
     Indication: Coronary artery disease
     Dosage: UNK
     Dates: start: 1995
  7. LANSOPRAZOLE [Concomitant]
     Active Substance: LANSOPRAZOLE
     Indication: Gastric disorder
     Dosage: UNK
     Dates: start: 1995
  8. ZALDIAR [Concomitant]
     Active Substance: ACETAMINOPHEN\TRAMADOL HYDROCHLORIDE
     Indication: Malignant melanoma
     Dosage: UNK
     Dates: start: 2022
  9. TRAMADOL [Concomitant]
     Active Substance: TRAMADOL
     Indication: Malignant melanoma
     Dosage: UNK
     Dates: start: 2022
  10. ACETAMINOPHEN\CODEINE PHOSPHATE [Concomitant]
     Active Substance: ACETAMINOPHEN\CODEINE PHOSPHATE
     Indication: Malignant melanoma
     Dosage: UNK
     Dates: start: 2022

REACTIONS (1)
  - Colitis [Recovered/Resolved]

NARRATIVE: CASE EVENT DATE: 20230311
